FAERS Safety Report 18343775 (Version 3)
Quarter: 2023Q4

REPORT INFORMATION
  Report Type: Spontaneous
  Country: US (occurrence: None)
  Receive Date: 20201005
  Receipt Date: 20231124
  Transmission Date: 20240110
  Serious: Yes (Hospitalization, Other)
  Sender: FDA-Public Use
  Company Number: 2020SF25291

PATIENT
  Age: 23380 Day
  Sex: Female
  Weight: 113.4 kg

DRUGS (53)
  1. FARXIGA [Suspect]
     Active Substance: DAPAGLIFLOZIN PROPANEDIOL
     Indication: Type 2 diabetes mellitus
     Route: 048
     Dates: start: 20151013, end: 20151204
  2. FARXIGA [Suspect]
     Active Substance: DAPAGLIFLOZIN PROPANEDIOL
     Indication: Weight decreased
     Route: 048
     Dates: start: 20151013, end: 20151204
  3. FARXIGA [Suspect]
     Active Substance: DAPAGLIFLOZIN PROPANEDIOL
     Indication: Hypotension
     Route: 048
     Dates: start: 20151013, end: 20151204
  4. FARXIGA [Suspect]
     Active Substance: DAPAGLIFLOZIN PROPANEDIOL
     Indication: Type 2 diabetes mellitus
     Route: 048
     Dates: start: 201510, end: 201511
  5. FARXIGA [Suspect]
     Active Substance: DAPAGLIFLOZIN PROPANEDIOL
     Indication: Weight decreased
     Route: 048
     Dates: start: 201510, end: 201511
  6. FARXIGA [Suspect]
     Active Substance: DAPAGLIFLOZIN PROPANEDIOL
     Indication: Hypotension
     Route: 048
     Dates: start: 201510, end: 201511
  7. AMLODIPINE BESYLATE [Concomitant]
     Active Substance: AMLODIPINE BESYLATE
  8. FLUOXETINE [Concomitant]
     Active Substance: FLUOXETINE HYDROCHLORIDE
  9. RELION NOVOLIN [Concomitant]
  10. CARVEDILOL [Concomitant]
     Active Substance: CARVEDILOL
  11. ESCITALOPRAM [Concomitant]
     Active Substance: ESCITALOPRAM OXALATE
  12. GLIPIZIDE [Concomitant]
     Active Substance: GLIPIZIDE
  13. LISINOPRIL [Concomitant]
     Active Substance: LISINOPRIL
  14. NITROGLYCERIN [Concomitant]
     Active Substance: NITROGLYCERIN
  15. ATORVASTATIN [Concomitant]
     Active Substance: ATORVASTATIN
  16. METFORMIN [Concomitant]
     Active Substance: METFORMIN HYDROCHLORIDE
  17. SULFAMETHOXAZOLE [Concomitant]
     Active Substance: SULFAMETHOXAZOLE
  18. CIPROFLOXACIN [Concomitant]
     Active Substance: CIPROFLOXACIN
  19. OXYCODONE HYDROCHLORORIDE [Concomitant]
  20. MORPHINE SULFATE [Concomitant]
     Active Substance: MORPHINE SULFATE
  21. CHLORTHALIDONE [Concomitant]
     Active Substance: CHLORTHALIDONE
  22. CLOPIDOGREL [Concomitant]
     Active Substance: CLOPIDOGREL BISULFATE
  23. TRAZODONE [Concomitant]
     Active Substance: TRAZODONE HYDROCHLORIDE
  24. CLINDAMYCIN [Concomitant]
     Active Substance: CLINDAMYCIN
  25. NOVOLOG [Concomitant]
     Active Substance: INSULIN ASPART
  26. MIRALAX [Concomitant]
     Active Substance: POLYETHYLENE GLYCOL 3350
  27. SENOKOT-S [Concomitant]
     Active Substance: DOCUSATE SODIUM\SENNOSIDES
  28. NPH INSULIN [Concomitant]
     Active Substance: INSULIN BEEF
  29. CEFEPIME [Concomitant]
     Active Substance: CEFEPIME HYDROCHLORIDE
  30. VANCOMYCIN [Concomitant]
     Active Substance: VANCOMYCIN
  31. UNSPECIFIED INGREDIENT [Concomitant]
     Active Substance: UNSPECIFIED INGREDIENT
  32. ASPIRIN [Concomitant]
     Active Substance: ASPIRIN
  33. METRONIDAZOLE [Concomitant]
     Active Substance: METRONIDAZOLE
  34. DOCUSATE [Concomitant]
     Active Substance: DOCUSATE
  35. SODIUM CHLORIDE [Concomitant]
     Active Substance: SODIUM CHLORIDE
  36. HEPARIN [Concomitant]
     Active Substance: HEPARIN SODIUM
  37. GLUCERNA [Concomitant]
     Active Substance: AMINO ACIDS\DEXTROSE\ELECTROLYTES NOS\SOYBEAN OIL\VITAMINS
  38. DEXTROSE [Concomitant]
     Active Substance: DEXTROSE\DEXTROSE MONOHYDRATE
  39. ENOXAPARIN [Concomitant]
     Active Substance: ENOXAPARIN
  40. VITAMIN D3 [Concomitant]
     Active Substance: CHOLECALCIFEROL
  41. NAPROXEN SODIUM [Concomitant]
     Active Substance: NAPROXEN\NAPROXEN SODIUM
  42. NYSTATIN [Concomitant]
     Active Substance: NYSTATIN
  43. MAGNESIUM [Concomitant]
     Active Substance: MAGNESIUM
  44. UNSPECIFIED INGREDIENT [Concomitant]
     Active Substance: UNSPECIFIED INGREDIENT
  45. BYDUREON [Concomitant]
     Active Substance: EXENATIDE
  46. METOPROLOL SUCCINATE [Concomitant]
     Active Substance: METOPROLOL SUCCINATE
  47. LANTUS SOLOSTAR [Concomitant]
     Active Substance: INSULIN GLARGINE
  48. ERYTHROMYCIN [Concomitant]
     Active Substance: ERYTHROMYCIN
  49. CLINDAMYCIN [Concomitant]
     Active Substance: CLINDAMYCIN
  50. ALSIX [Concomitant]
  51. GABAPENTIN [Concomitant]
     Active Substance: GABAPENTIN
  52. PROBIOTICS NOS [Concomitant]
     Active Substance: PROBIOTICS NOS
  53. TRAZODONE [Concomitant]
     Active Substance: TRAZODONE HYDROCHLORIDE

REACTIONS (9)
  - Fournier^s gangrene [Unknown]
  - Necrotising soft tissue infection [Unknown]
  - Necrotising fasciitis [Unknown]
  - Vulval abscess [Unknown]
  - Urinary tract infection [Unknown]
  - Deformity [Unknown]
  - Pyelonephritis [Unknown]
  - Abdominal wall infection [Unknown]
  - Depression [Unknown]

NARRATIVE: CASE EVENT DATE: 20151125
